FAERS Safety Report 8069929-X (Version None)
Quarter: 2012Q1

REPORT INFORMATION
  Report Type: 
  Country: None (occurrence: None)
  Receive Date: 20120125
  Receipt Date: 20120125
  Transmission Date: 20120608
  Serious: Yes (Life-Threatening)
  Sender: FDA-Public Use
  Company Number: None

PATIENT
  Age: 78 Year
  Sex: Female
  Weight: 70 kg

DRUGS (1)
  1. HEPARIN [Suspect]
     Indication: ATRIAL FIBRILLATION
     Dosage: 20,000 UNITS TITRATED
     Route: 041
     Dates: start: 20120120, end: 20120122

REACTIONS (2)
  - PRODUCT COMPOUNDING QUALITY ISSUE [None]
  - PRODUCT QUALITY ISSUE [None]
